FAERS Safety Report 8134235-1 (Version None)
Quarter: 2012Q1

REPORT INFORMATION
  Report Type: 
  Country: None (occurrence: None)
  Receive Date: 20120209
  Receipt Date: 20120130
  Transmission Date: 20120608
  Serious: Yes (Death, Hospitalization, Other)
  Sender: FDA-Public Use
  Company Number: 2012MA001335

PATIENT
  Sex: Female

DRUGS (15)
  1. MULTI-VITAMIN [Concomitant]
  2. HYDROCHLOROTHIAZIDE [Concomitant]
  3. COUMADIN [Concomitant]
  4. LOPRESSOR [Concomitant]
  5. NAMENDA [Concomitant]
  6. COLACE [Concomitant]
  7. ATIVAN [Concomitant]
  8. PATANOL [Concomitant]
  9. ASPIRIN [Concomitant]
  10. NOVOLIN 70/30 [Concomitant]
  11. CITALOPRAM HYDROBROMIDE [Concomitant]
  12. HEPARIN [Concomitant]
  13. LEVEMIR [Concomitant]
  14. TYLENOL-500 [Concomitant]
  15. DIGOXIN [Suspect]
     Dosage: 0.125 MG;PO
     Route: 048
     Dates: start: 20071011, end: 20080326

REACTIONS (18)
  - SWELLING FACE [None]
  - BLOOD GLUCOSE DECREASED [None]
  - TRAUMATIC HAEMATOMA [None]
  - APHASIA [None]
  - VOCAL CORD PARALYSIS [None]
  - SKIN WARM [None]
  - DRY SKIN [None]
  - MUSCULAR WEAKNESS [None]
  - HEMIPLEGIA [None]
  - ELECTROCARDIOGRAM Q WAVE ABNORMAL [None]
  - VIITH NERVE PARALYSIS [None]
  - ISCHAEMIC STROKE [None]
  - FALL [None]
  - ANXIETY DISORDER [None]
  - DEMENTIA [None]
  - ATRIAL FIBRILLATION [None]
  - MONOPLEGIA [None]
  - MOVEMENT DISORDER [None]
